FAERS Safety Report 6600507-2 (Version None)
Quarter: 2010Q1

REPORT INFORMATION
  Report Type: 
  Country: None (occurrence: None)
  Receive Date: 20100224
  Receipt Date: 20100217
  Transmission Date: 20100710
  Serious: Yes (Death)
  Sender: FDA-Public Use
  Company Number: US-MERCK-0805USA00725

PATIENT
  Age: 55 Year
  Sex: Female

DRUGS (1)
  1. FOSAMAX [Suspect]
     Indication: BONE NEOPLASM MALIGNANT
     Route: 048
     Dates: start: 20050101

REACTIONS (5)
  - BONE CANCER METASTATIC [None]
  - DEATH [None]
  - LUNG CANCER METASTATIC [None]
  - METASTASES TO LIVER [None]
  - TOOTH LOSS [None]
